FAERS Safety Report 23698547 (Version 1)
Quarter: 2024Q2

REPORT INFORMATION
  Report Type: Spontaneous
  Country: US (occurrence: None)
  Receive Date: 20240402
  Receipt Date: 20240402
  Transmission Date: 20240716
  Serious: Yes (Other)
  Sender: FDA-Public Use
  Company Number: 2024A072888

PATIENT
  Age: 26557 Day
  Sex: Female

DRUGS (1)
  1. SYMBICORT [Suspect]
     Active Substance: BUDESONIDE\FORMOTEROL FUMARATE DIHYDRATE
     Indication: Asthma-chronic obstructive pulmonary disease overlap syndrome
     Route: 055

REACTIONS (10)
  - Heart rate decreased [Unknown]
  - Cardiac disorder [Unknown]
  - Heart rate irregular [Unknown]
  - Palpitations [Unknown]
  - Stress [Unknown]
  - Anxiety [Unknown]
  - Illness [Unknown]
  - Product use issue [Unknown]
  - Heart rate increased [Unknown]
  - Product dose omission issue [Unknown]

NARRATIVE: CASE EVENT DATE: 20240325
